FAERS Safety Report 7581156-9 (Version None)
Quarter: 2011Q2

REPORT INFORMATION
  Report Type: 
  Country: None (occurrence: None)
  Receive Date: 20110629
  Receipt Date: 20110622
  Transmission Date: 20111010
  Serious: Yes (Other)
  Sender: FDA-Public Use
  Company Number: GB-PFIZER INC-2011138369

PATIENT
  Age: 59 Year
  Sex: Male

DRUGS (26)
  1. FUROSEMIDE [Concomitant]
     Dosage: 80 MG, UNK
     Dates: start: 20110202
  2. NYSTATIN [Concomitant]
     Dosage: 1 ML, UNK
     Dates: start: 20101129
  3. AMLODIPINE [Concomitant]
     Dosage: 5 MG, UNK
     Dates: start: 20101210
  4. BISOPROLOL [Concomitant]
     Dosage: 2.5 MG, UNK
     Dates: start: 20101225
  5. ALLOPURINOL [Concomitant]
     Dosage: 300 MG, UNK
     Dates: start: 20110202
  6. FUROSEMIDE [Concomitant]
     Dosage: 120 MG, UNK
     Dates: start: 20101129, end: 20110202
  7. DIPROBASE CREAM [Concomitant]
     Dosage: UNK
     Route: 061
     Dates: start: 20101223
  8. ITRACONAZOLE [Concomitant]
     Dosage: 200 MG, UNK
     Dates: start: 20110204
  9. ETOPOSIDE [Suspect]
     Indication: ACUTE MYELOID LEUKAEMIA
     Dosage: UNK
     Dates: start: 20110203, end: 20110210
  10. CHLORHEXIDINE [Concomitant]
     Dosage: 10 ML, UNK
     Dates: start: 20101129
  11. METOCLOPRAMIDE [Concomitant]
     Dosage: 10 MG, UNK
     Dates: start: 20101218
  12. CO-AMILOFRUSE [Concomitant]
     Dosage: UNK
     Dates: start: 20110202
  13. ACICLOVIR [Concomitant]
     Dosage: 400 MG, UNK
     Dates: start: 20101129
  14. GEMTUZUMAB OZOGAMICIN [Suspect]
     Indication: ACUTE MYELOID LEUKAEMIA
     Dosage: UNK
     Dates: start: 20110203, end: 20110210
  15. LESTAURTINIB [Suspect]
     Dosage: UNK
     Dates: start: 20110203, end: 20110210
  16. ADCAL-D3 [Concomitant]
     Dosage: 2 DF, UNK
     Dates: start: 20101229
  17. OMEPRAZOLE [Concomitant]
     Dosage: 20 MG, UNK
     Dates: start: 20101129
  18. SPIRONOLACTONE [Concomitant]
     Dosage: 25 MG, UNK
     Dates: start: 20110202
  19. CYTARABINE [Suspect]
     Indication: ACUTE MYELOID LEUKAEMIA
     Dosage: UNK
     Dates: start: 20110203, end: 20110210
  20. DAUNORUBICIN HCL [Suspect]
     Indication: ACUTE MYELOID LEUKAEMIA
     Dosage: UNK
     Dates: start: 20110203, end: 20110210
  21. ONDANSETRON [Concomitant]
     Dosage: 8 MG, UNK
     Dates: start: 20101220
  22. TAMSULOSIN [Concomitant]
     Dosage: 400 UG, UNK
     Dates: start: 20110114
  23. MOVIPREP [Concomitant]
     Dosage: 1 DF, UNK
     Dates: start: 20110202
  24. LOPERAMIDE [Concomitant]
     Dosage: 2 MG, UNK
     Dates: start: 20101215
  25. RAMIPRIL [Concomitant]
     Dosage: 1.25 MG, UNK
     Dates: start: 20101221
  26. ITRACONAZOLE [Concomitant]
     Dosage: 400 MG, UNK
     Dates: start: 20110202, end: 20110204

REACTIONS (2)
  - COLITIS [None]
  - CLOSTRIDIAL INFECTION [None]
